FAERS Safety Report 6199294-4 (Version None)
Quarter: 2009Q2

REPORT INFORMATION
  Report Type: 
  Country: None (occurrence: None)
  Receive Date: 20090522
  Receipt Date: 20090514
  Transmission Date: 20091009
  Serious: Yes (Other)
  Sender: FDA-Public Use
  Company Number: US-PFIZER INC-2006033580

PATIENT
  Sex: Female

DRUGS (8)
  1. PROVERA [Suspect]
     Indication: HORMONE REPLACEMENT THERAPY
     Dosage: UNK
     Route: 048
     Dates: start: 19970501, end: 20000901
  2. PREMARIN [Suspect]
     Indication: HORMONE REPLACEMENT THERAPY
     Dosage: UNK
     Route: 065
     Dates: start: 19970501, end: 20000901
  3. PREMPRO [Suspect]
     Indication: HORMONE REPLACEMENT THERAPY
     Dosage: UNK
     Route: 065
     Dates: start: 20001001, end: 20020401
  4. MEDROXYPROGESTERONE ACETATE [Suspect]
     Indication: HORMONE REPLACEMENT THERAPY
     Dosage: UNK
     Route: 065
     Dates: start: 19970701, end: 19990801
  5. DIAZEPAM [Concomitant]
     Indication: NERVOUSNESS
     Dosage: UNK
     Dates: start: 20020101
  6. DIAZEPAM [Concomitant]
     Indication: ANXIETY
  7. TRIAZOLAM [Concomitant]
     Indication: SLEEP DISORDER
     Dosage: UNK
  8. THEO-24 [Concomitant]
     Indication: BRONCHIAL DISORDER
     Dosage: UNK

REACTIONS (1)
  - BREAST CANCER [None]
